FAERS Safety Report 17767974 (Version 1)
Quarter: 2020Q2

REPORT INFORMATION
  Report Type: Report from Study
  Country: GT (occurrence: GT)
  Receive Date: 20200511
  Receipt Date: 20200511
  Transmission Date: 20200714
  Serious: Yes (Other)
  Sender: FDA-Public Use
  Company Number: PHHY2016GT025148

PATIENT
  Age: 73 Year
  Sex: Female
  Weight: 73.02 kg

DRUGS (3)
  1. EXFORGE [Suspect]
     Active Substance: AMLODIPINE BESYLATE\VALSARTAN
     Indication: HYPERTENSION
     Dosage: 1 DF ((AMLODIPINE 5 MG/ VALSARTAN 320 MG)) , UNK
     Route: 065
  2. EXFORGE [Suspect]
     Active Substance: AMLODIPINE BESYLATE\VALSARTAN
     Dosage: UNK
     Route: 065
     Dates: start: 20160209
  3. EXFORGE [Suspect]
     Active Substance: AMLODIPINE BESYLATE\VALSARTAN
     Dosage: 1 DF ((AMLODIPINE 5 MG/ VALSARTAN 160 MG)) , UNK
     Route: 065

REACTIONS (7)
  - Product dose omission [Unknown]
  - Myocardial ischaemia [Recovered/Resolved]
  - Plantar fasciitis [Unknown]
  - Angina pectoris [Recovered/Resolved]
  - Hypotension [Unknown]
  - Blood cholesterol increased [Recovered/Resolved]
  - Gait disturbance [Unknown]

NARRATIVE: CASE EVENT DATE: 2009
